FAERS Safety Report 11506953 (Version 2)
Quarter: 2016Q4

REPORT INFORMATION
  Report Type: Spontaneous
  Country: US (occurrence: None)
  Receive Date: 20150908
  Receipt Date: 20151023
  Transmission Date: 20170206
  Serious: Yes (Hospitalization, Other)
  Sender: FDA-Public Use
  Company Number: 1713747-2015-999298

PATIENT
  Age: 68 Year
  Sex: Male
  Weight: 111 kg

DRUGS (14)
  1. LEVEMIR [Concomitant]
     Active Substance: INSULIN DETEMIR
  2. ACETAMINOPHEN\HYDROCODONE BITARTRATE [Concomitant]
     Active Substance: ACETAMINOPHEN\HYDROCODONE BITARTRATE
  3. CALCIUM ACETATE. [Concomitant]
     Active Substance: CALCIUM ACETATE
  4. ERGOCALCIFEROL. [Concomitant]
     Active Substance: ERGOCALCIFEROL
  5. LAMOTRIGINE. [Concomitant]
     Active Substance: LAMOTRIGINE
  6. ALBUTEROL SULFATE. [Concomitant]
     Active Substance: ALBUTEROL SULFATE
  7. DELFLEX [Suspect]
     Active Substance: CALCIUM CHLORIDE\DEXTROSE\MAGNESIUM CHLORIDE\SODIUM CHLORIDE\SODIUM LACTATE
     Indication: PERITONEAL DIALYSIS
     Route: 033
     Dates: start: 201505
  8. ESCITALOPRAM OXALATE. [Concomitant]
     Active Substance: ESCITALOPRAM OXALATE
  9. VITAMIN D [Concomitant]
     Active Substance: CHOLECALCIFEROL
  10. B COMPLEX-C-FOLIC ACID [Concomitant]
  11. ATORVASTATIN CALCIUM. [Concomitant]
     Active Substance: ATORVASTATIN CALCIUM
  12. FLUTICASONE FUROATE [Concomitant]
     Active Substance: FLUTICASONE FUROATE
  13. EPOETIN ALFA [Concomitant]
     Active Substance: ERYTHROPOIETIN
  14. METOPROLOL SUCCINATE ER [Concomitant]
     Active Substance: METOPROLOL SUCCINATE

REACTIONS (3)
  - Klebsiella infection [None]
  - Peritonitis [None]
  - Catheter culture positive [None]

NARRATIVE: CASE EVENT DATE: 20150831
